FAERS Safety Report 21582999 (Version 1)
Quarter: 2022Q4

REPORT INFORMATION
  Report Type: Spontaneous
  Country: DE (occurrence: DE)
  Receive Date: 20221111
  Receipt Date: 20221111
  Transmission Date: 20230113
  Serious: Yes (Death, Life-Threatening, Hospitalization, Other)
  Sender: FDA-Public Use
  Company Number: DE-BRISTOL-MYERS SQUIBB COMPANY-2022-132780

PATIENT
  Age: 75 Year
  Sex: Female
  Weight: 67.5 kg

DRUGS (3)
  1. DEXAMETHASONE [Suspect]
     Active Substance: DEXAMETHASONE
     Indication: Plasma cell myeloma
     Dosage: 20 MG (LINE OF TREATMENT: LINE 2)
     Route: 065
     Dates: start: 20221017, end: 20221020
  2. DARATUMUMAB [Suspect]
     Active Substance: DARATUMUMAB
     Indication: Plasma cell myeloma
     Dosage: 540 MG (LINE OF TREATMENT: LINE 2)
     Route: 065
     Dates: start: 20221017, end: 20221020
  3. REVLIMID [Suspect]
     Active Substance: LENALIDOMIDE
     Indication: Plasma cell myeloma
     Dosage: 25 MG (LINE OF TREATMENT: LINE 2)
     Route: 065
     Dates: start: 20221017, end: 20221020

REACTIONS (1)
  - Pneumonia [Fatal]

NARRATIVE: CASE EVENT DATE: 20221020
